FAERS Safety Report 9735821 (Version 2)
Quarter: 2015Q3

REPORT INFORMATION
  Report Type: Spontaneous
  Country: US (occurrence: US)
  Receive Date: 20131206
  Receipt Date: 20150804
  Transmission Date: 20151125
  Serious: No
  Sender: FDA-Public Use
  Company Number: US-GILEAD-2009-0023813

PATIENT
  Age: 60 Year
  Sex: Female
  Weight: 71.21 kg

DRUGS (19)
  1. ARIMIDEX [Concomitant]
     Active Substance: ANASTROZOLE
  2. HUMIRA [Concomitant]
     Active Substance: ADALIMUMAB
  3. MELOXICAM. [Concomitant]
     Active Substance: MELOXICAM
  4. FERROUS SULFATE [Concomitant]
     Active Substance: FERROUS SULFATE\FERROUS SULFATE, DRIED
  5. LETAIRIS [Suspect]
     Active Substance: AMBRISENTAN
     Indication: PULMONARY ARTERIAL HYPERTENSION
     Route: 048
     Dates: start: 20090730
  6. SINGULAIR [Concomitant]
     Active Substance: MONTELUKAST SODIUM
  7. ADVAIR HFA [Concomitant]
     Active Substance: FLUTICASONE PROPIONATE\SALMETEROL XINAFOATE
  8. VITAMIN D [Concomitant]
     Active Substance: CHOLECALCIFEROL
  9. SIMVASTATIN. [Concomitant]
     Active Substance: SIMVASTATIN
  10. LEFLUNOMIDE. [Concomitant]
     Active Substance: LEFLUNOMIDE
  11. MULTIVITAMIN [Concomitant]
     Active Substance: VITAMINS
  12. SPIRIVA [Concomitant]
     Active Substance: TIOTROPIUM BROMIDE MONOHYDRATE
  13. RESTASIS [Concomitant]
     Active Substance: CYCLOSPORINE
  14. BENADRYL ALLERGY AND SINUS [Concomitant]
  15. DILTIAZEM [Concomitant]
     Active Substance: DILTIAZEM
  16. PREDNISONE. [Concomitant]
     Active Substance: PREDNISONE
  17. VENTOLIN [Concomitant]
     Active Substance: ALBUTEROL SULFATE
  18. QVAR [Concomitant]
     Active Substance: BECLOMETHASONE DIPROPIONATE
  19. NEXIUM [Concomitant]
     Active Substance: ESOMEPRAZOLE MAGNESIUM

REACTIONS (1)
  - Drug hypersensitivity [Unknown]
